FAERS Safety Report 4495973-5 (Version None)
Quarter: 2004Q4

REPORT INFORMATION
  Report Type: 
  Country: None (occurrence: None)
  Receive Date: 20040927
  Receipt Date: 20040624
  Transmission Date: 20050328
  Serious: No
  Sender: FDA-Public Use
  Company Number: USA040567740

PATIENT
  Age: 7 Year
  Sex: Male
  Weight: 29 kg

DRUGS (1)
  1. STRATTERA [Suspect]
     Indication: ATTENTION DEFICIT/HYPERACTIVITY DISORDER
     Dosage: 40 MG/L DAY
     Dates: start: 20040513

REACTIONS (4)
  - DECREASED APPETITE [None]
  - EXCITABILITY [None]
  - SOMNOLENCE [None]
  - WEIGHT DECREASED [None]
